FAERS Safety Report 6011047-6 (Version None)
Quarter: 2008Q4

REPORT INFORMATION
  Report Type: 
  Country: None (occurrence: None)
  Receive Date: 20081218
  Receipt Date: 20081205
  Transmission Date: 20090506
  Serious: Yes (Other)
  Sender: FDA-Public Use
  Company Number: JP-PFIZER INC-2008152560

PATIENT

DRUGS (4)
  1. GABAPENTIN [Suspect]
     Dosage: UNK
     Route: 048
  2. PHENYTOIN AND PHENYTOIN SODIUM [Suspect]
     Dosage: UNK
     Route: 048
  3. PHENOBARBITAL [Suspect]
     Route: 048
  4. EXCEGRAN [Suspect]
     Route: 048

REACTIONS (3)
  - CONVULSION [None]
  - DIZZINESS [None]
  - LIVER DISORDER [None]
